FAERS Safety Report 20628895 (Version 1)
Quarter: 2022Q1

REPORT INFORMATION
  Report Type: Spontaneous
  Country: US (occurrence: US)
  Receive Date: 20220323
  Receipt Date: 20220323
  Transmission Date: 20220423
  Serious: No
  Sender: FDA-Public Use
  Company Number: US-TEVA-2022-US-2011938

PATIENT
  Sex: Female

DRUGS (22)
  1. COPAXONE [Suspect]
     Active Substance: GLATIRAMER ACETATE
     Dosage: FORM STRENGTH: UNKNOWN
     Route: 065
     Dates: start: 201804
  2. COPAXONE [Suspect]
     Active Substance: GLATIRAMER ACETATE
     Dosage: FORM STRENGTH: UNKNOWN
     Route: 065
     Dates: start: 201811
  3. GLATIRAMER ACETATE [Suspect]
     Active Substance: GLATIRAMER ACETATE
     Route: 065
  4. OCREVUS [Concomitant]
     Active Substance: OCRELIZUMAB
  5. ELIQUIS [Concomitant]
     Active Substance: APIXABAN
  6. HYDRALAZINE [Concomitant]
     Active Substance: HYDRALAZINE HYDROCHLORIDE
  7. CAPTOPRIL [Concomitant]
     Active Substance: CAPTOPRIL
  8. ZOFRAN [Concomitant]
     Active Substance: ONDANSETRON HYDROCHLORIDE
  9. LINZESS [Concomitant]
     Active Substance: LINACLOTIDE
  10. VIBERZI [Concomitant]
     Active Substance: ELUXADOLINE
  11. BELBUCA [Concomitant]
     Active Substance: BUPRENORPHINE HYDROCHLORIDE
  12. VICODIN HP [Concomitant]
     Active Substance: ACETAMINOPHEN\HYDROCODONE BITARTRATE
  13. ALBUTEROL SULFATE [Concomitant]
     Active Substance: ALBUTEROL SULFATE
  14. LIBRIUM [Concomitant]
     Active Substance: CHLORDIAZEPOXIDE HYDROCHLORIDE
  15. PRAVASTATIN [Concomitant]
     Active Substance: PRAVASTATIN
  16. VALIUM [Concomitant]
     Active Substance: DIAZEPAM
  17. TIZANIDINE [Concomitant]
     Active Substance: TIZANIDINE
  18. GABAPENTIN [Concomitant]
     Active Substance: GABAPENTIN
  19. BACLOFEN [Concomitant]
     Active Substance: BACLOFEN
  20. MIDODRINE [Concomitant]
     Active Substance: MIDODRINE
  21. TRAZODONE [Concomitant]
     Active Substance: TRAZODONE HYDROCHLORIDE
  22. PREGABALIN [Concomitant]
     Active Substance: PREGABALIN

REACTIONS (2)
  - Diarrhoea [Unknown]
  - Dyspnoea [Unknown]
